FAERS Safety Report 9894870 (Version 3)
Quarter: 2014Q2

REPORT INFORMATION
  Report Type: Spontaneous
  Country: IT (occurrence: IT)
  Receive Date: 20140213
  Receipt Date: 20140414
  Transmission Date: 20141212
  Serious: Yes (Hospitalization)
  Sender: FDA-Public Use
  Company Number: IT-ABBVIE-14P-083-1200877-00

PATIENT
  Age: 47 Year
  Sex: Male

DRUGS (5)
  1. DEPAKIN [Suspect]
     Indication: DRUG ABUSE
     Dosage: 30 DOSAGE FORM; TOTAL
     Route: 048
     Dates: start: 20140123, end: 20140123
  2. LEVOMEPROMAZINE [Suspect]
     Indication: DRUG ABUSE
     Dosage: 20 DOSAGE FORM; TOTAL
     Route: 048
     Dates: start: 20140123, end: 20140123
  3. LYRICA [Suspect]
     Indication: DRUG ABUSE
     Dosage: 34 DOSAGE FORM; TOTAL
     Route: 048
     Dates: start: 20140123, end: 20140123
  4. CEFUROXIME AXETIL [Suspect]
     Indication: DRUG ABUSE
     Dosage: 3 GRAMS; TOTAL
     Route: 048
     Dates: start: 20140123, end: 20140123
  5. HEROIN [Concomitant]
     Indication: PRODUCT USED FOR UNKNOWN INDICATION

REACTIONS (2)
  - Sopor [Recovered/Resolved]
  - Drug abuse [Recovered/Resolved]
